FAERS Safety Report 5476458-6 (Version None)
Quarter: 2007Q3

REPORT INFORMATION
  Report Type: 
  Country: None (occurrence: None)
  Receive Date: 20070904
  Receipt Date: 20070717
  Transmission Date: 20080115
  Serious: No
  Sender: FDA-Public Use
  Company Number: PHEH2007US10085

PATIENT
  Age: 61 Year
  Sex: Female

DRUGS (8)
  1. ENABLEX [Suspect]
     Dosage: 7.5 MG, QD, ORAL
     Route: 048
  2. PAXIL [Concomitant]
  3. LANOXIN [Concomitant]
  4. XANAX [Concomitant]
  5. GLYBURIDE [Concomitant]
  6. INSULIN [Concomitant]
  7. FUROSEMIDE [Concomitant]
  8. POTASSIUM CHLORIDE [Concomitant]

REACTIONS (4)
  - DISCOMFORT [None]
  - DYSPNOEA [None]
  - FATIGUE [None]
  - MALAISE [None]
